FAERS Safety Report 5190633-X (Version None)
Quarter: 2006Q4

REPORT INFORMATION
  Report Type: 
  Country: None (occurrence: None)
  Receive Date: 20061222
  Receipt Date: 20061016
  Transmission Date: 20070319
  Serious: No
  Sender: FDA-Public Use
  Company Number: US-BRISTOL-MYERS SQUIBB COMPANY-13542337

PATIENT
  Age: 29 Year
  Sex: Male
  Weight: 79 kg

DRUGS (2)
  1. ORENCIA [Suspect]
     Indication: RHEUMATOID ARTHRITIS
     Route: 042
     Dates: start: 20061002
  2. PREDNISONE TAB [Concomitant]

REACTIONS (4)
  - CONSTIPATION [None]
  - DYSPNOEA [None]
  - FACIAL PAIN [None]
  - JOINT SWELLING [None]
